FAERS Safety Report 20987163 (Version 1)
Quarter: 2022Q2

REPORT INFORMATION
  Report Type: Spontaneous
  Country: US (occurrence: None)
  Receive Date: 20220619
  Receipt Date: 20220619
  Transmission Date: 20220721
  Serious: Yes (Other)
  Sender: FDA-Public Use
  Company Number: None

PATIENT
  Age: 43 Year
  Sex: Female
  Weight: 120.6 kg

DRUGS (22)
  1. FENOFIBRATE [Suspect]
     Active Substance: FENOFIBRATE
     Indication: Blood cholesterol increased
     Dosage: FREQUENCY : DAILY;?
     Route: 048
     Dates: start: 20220521, end: 20220521
  2. ALLOPURINOL [Concomitant]
     Active Substance: ALLOPURINOL
  3. COLCHICINE [Concomitant]
     Active Substance: COLCHICINE
  4. CLONIDINE [Concomitant]
     Active Substance: CLONIDINE
  5. FLOVENT [Concomitant]
     Active Substance: FLUTICASONE PROPIONATE
  6. ALBUTEROL [Concomitant]
     Active Substance: ALBUTEROL
  7. VERAPAMIL [Concomitant]
     Active Substance: VERAPAMIL HYDROCHLORIDE
  8. HYZAAR [Concomitant]
     Active Substance: HYDROCHLOROTHIAZIDE\LOSARTAN POTASSIUM
  9. SERTRALINE [Concomitant]
     Active Substance: SERTRALINE HYDROCHLORIDE
  10. BUPROPION [Concomitant]
     Active Substance: BUPROPION
  11. NEXIUM [Concomitant]
     Active Substance: ESOMEPRAZOLE MAGNESIUM
  12. RELAFEN [Concomitant]
     Active Substance: NABUMETONE
  13. ZYRTEC [Concomitant]
     Active Substance: CETIRIZINE HYDROCHLORIDE
  14. Omega-3 [Concomitant]
  15. Acid Ethyl Esters Capsules [Concomitant]
  16. CULTURELLE [Concomitant]
     Active Substance: LACTOBACILLUS RHAMNOSUS
  17. CRANBERRY [Concomitant]
     Active Substance: CRANBERRY
  18. COENZYME Q10 [Concomitant]
     Active Substance: DIETARY SUPPLEMENT\UBIDECARENONE
  19. B12 sublingual [Concomitant]
  20. omega 3 plus vitamin D [Concomitant]
  21. VITAMINS [Concomitant]
     Active Substance: VITAMINS
  22. rhinocort OTC [Concomitant]

REACTIONS (6)
  - Dizziness [None]
  - Vertigo [None]
  - Pruritus [None]
  - Urticaria [None]
  - Hallucination, auditory [None]
  - Crying [None]

NARRATIVE: CASE EVENT DATE: 20220521
